FAERS Safety Report 8897039 (Version 1)
Quarter: 2012Q4

REPORT INFORMATION
  Report Type: Spontaneous
  Country: AR (occurrence: None)
  Receive Date: 20121102
  Receipt Date: 20121102
  Transmission Date: 20130627
  Serious: Yes (Other)
  Sender: FDA-Public Use
  Company Number: VAL_00942_2012

PATIENT
  Sex: Female

DRUGS (1)
  1. LOPRESOR [Suspect]

REACTIONS (2)
  - Lymphoma [None]
  - Hip fracture [None]
